FAERS Safety Report 8758307 (Version 1)
Quarter: 2012Q4

REPORT INFORMATION
  Report Type: 
  Country: US (occurrence: US)
  Receive Date: 20120829
  Receipt Date: 20120829
  Transmission Date: 20130627
  Serious: Yes (Hospitalization)
  Sender: FDA-Public Use
  Company Number: US-ELI_LILLY_AND_COMPANY-USA0507102701

PATIENT
  Age: 84 None
  Sex: Female

DRUGS (6)
  1. HUMALOG [Suspect]
     Indication: DIABETES MELLITUS
     Dosage: 16 u, daily (1/D)
  2. HUMALOG [Suspect]
     Dosage: UNK, prn
  3. FORTEO [Suspect]
     Indication: OSTEOPOROSIS
     Dosage: 20 ug, daily (1/D)
     Dates: start: 200406
  4. LANTUS [Concomitant]
     Dosage: 7 u, each evening
  5. FOSAMAX [Concomitant]
     Dosage: UNK, unknown
  6. ACTONEL [Concomitant]
     Dosage: UNK, unknown

REACTIONS (12)
  - Spinal fracture [Recovered/Resolved with Sequelae]
  - Drug ineffective [Unknown]
  - Blood glucose increased [Recovered/Resolved]
  - Lumbar spinal stenosis [Not Recovered/Not Resolved]
  - Osteoporosis [Not Recovered/Not Resolved]
  - Arthritis [Not Recovered/Not Resolved]
  - Bone density decreased [Unknown]
  - Abdominal discomfort [Recovered/Resolved]
  - Road traffic accident [Recovered/Resolved]
  - Bone disorder [Unknown]
  - Visual impairment [Not Recovered/Not Resolved]
  - Blood glucose abnormal [Recovered/Resolved]
